FAERS Safety Report 7158681-8 (Version None)
Quarter: 2010Q4

REPORT INFORMATION
  Report Type: 
  Country: None (occurrence: None)
  Receive Date: 20101214
  Receipt Date: 20100623
  Transmission Date: 20110411
  Serious: No
  Sender: FDA-Public Use
  Company Number: US-ASTRAZENECA-2010SE29669

PATIENT
  Age: 71 Year
  Sex: Male
  Weight: 90.7 kg

DRUGS (5)
  1. CRESTOR [Suspect]
     Indication: HYPERCHOLESTEROLAEMIA
     Route: 048
     Dates: start: 20100618
  2. METFORMIN [Concomitant]
     Indication: DIABETES MELLITUS
  3. ASPIRIN [Concomitant]
     Indication: DIABETES MELLITUS
  4. HYDROCHLOROTHIAZIDE [Concomitant]
     Indication: DIABETES MELLITUS
  5. TERAZOSIN HCL [Concomitant]
     Indication: DIABETES MELLITUS

REACTIONS (5)
  - DIZZINESS [None]
  - HEADACHE [None]
  - HYPERGLYCAEMIA [None]
  - INAPPROPRIATE SCHEDULE OF DRUG ADMINISTRATION [None]
  - NAUSEA [None]
